FAERS Safety Report 23454684 (Version 3)
Quarter: 2025Q2

REPORT INFORMATION
  Report Type: Spontaneous
  Country: DE (occurrence: DE)
  Receive Date: 20240130
  Receipt Date: 20250418
  Transmission Date: 20250717
  Serious: Yes (Congenital Anomaly, Other)
  Sender: SANDOZ
  Company Number: None

PATIENT
  Sex: Female

DRUGS (14)
  1. AMLODIPINE [Suspect]
     Active Substance: AMLODIPINE BESYLATE
     Indication: Foetal exposure during pregnancy
     Route: 065
  2. ALISKIREN [Suspect]
     Active Substance: ALISKIREN
     Indication: Foetal exposure during pregnancy
     Route: 065
  3. BISOPROLOL [Suspect]
     Active Substance: BISOPROLOL
     Indication: Product used for unknown indication
     Route: 065
  4. BISOPROLOL [Suspect]
     Active Substance: BISOPROLOL
     Indication: Foetal exposure during pregnancy
  5. FOLIC ACID [Suspect]
     Active Substance: FOLIC ACID
     Indication: Foetal exposure during pregnancy
     Route: 065
  6. HYDROCHLOROTHIAZIDE [Suspect]
     Active Substance: HYDROCHLOROTHIAZIDE
     Indication: Foetal exposure during pregnancy
     Route: 065
  7. INDAPAMIDE [Suspect]
     Active Substance: INDAPAMIDE
     Indication: Foetal exposure during pregnancy
     Route: 065
  8. INSULIN ASPART [Suspect]
     Active Substance: INSULIN ASPART
     Indication: Foetal exposure during pregnancy
     Route: 065
  9. INSULIN GLARGINE [Suspect]
     Active Substance: INSULIN GLARGINE
     Indication: Foetal exposure during pregnancy
     Route: 065
  10. INSULIN HUMAN [Suspect]
     Active Substance: INSULIN HUMAN
     Indication: Foetal exposure during pregnancy
     Route: 065
  11. METFORMIN [Suspect]
     Active Substance: METFORMIN HYDROCHLORIDE
     Indication: Foetal exposure during pregnancy
     Route: 065
  12. METOPROLOL TARTRATE [Suspect]
     Active Substance: METOPROLOL TARTRATE
     Indication: Foetal exposure during pregnancy
     Route: 065
  13. METHYLDOPA [Suspect]
     Active Substance: METHYLDOPA
     Indication: Foetal exposure during pregnancy
     Route: 065
  14. PERINDOPRIL [Suspect]
     Active Substance: PERINDOPRIL
     Indication: Foetal exposure during pregnancy
     Route: 065

REACTIONS (2)
  - Conjoined twins [Unknown]
  - Foetal exposure during pregnancy [Recovered/Resolved]
